FAERS Safety Report 18702178 (Version 2)
Quarter: 2021Q1

REPORT INFORMATION
  Report Type: Other
  Country: GB (occurrence: GB)
  Receive Date: 20210105
  Receipt Date: 20210115
  Transmission Date: 20210419
  Serious: Yes (Other)
  Sender: FDA-Public Use
  Company Number: GB-APOTEX-2021AP000001

PATIENT
  Age: 33 Year
  Sex: Female
  Weight: 77.1 kg

DRUGS (3)
  1. SUMATRIPTAN. [Interacting]
     Active Substance: SUMATRIPTAN
     Indication: PRODUCT USED FOR UNKNOWN INDICATION
     Dosage: 50 MG
     Route: 065
     Dates: start: 20201208
  2. PAROXETINE. [Suspect]
     Active Substance: PAROXETINE
     Indication: PRODUCT USED FOR UNKNOWN INDICATION
     Dosage: 60 MG
     Route: 065
     Dates: start: 20201208
  3. NORTRIPTYLINE [Interacting]
     Active Substance: NORTRIPTYLINE
     Indication: MIGRAINE
     Dosage: 18 MG
     Route: 048
     Dates: start: 20201010, end: 20201207

REACTIONS (3)
  - Labelled drug-drug interaction issue [Unknown]
  - Syncope [Recovering/Resolving]
  - Loss of consciousness [Recovering/Resolving]

NARRATIVE: CASE EVENT DATE: 20201208
